FAERS Safety Report 24323383 (Version 2)
Quarter: 2024Q4

REPORT INFORMATION
  Report Type: Spontaneous
  Country: FR (occurrence: FR)
  Receive Date: 20240916
  Receipt Date: 20241001
  Transmission Date: 20250115
  Serious: Yes (Death)
  Sender: PFIZER
  Company Number: FR-ROCHE-10000070434

PATIENT
  Age: 6 Year
  Sex: Male
  Weight: 18.8 kg

DRUGS (14)
  1. CYTARABINE [Suspect]
     Active Substance: CYTARABINE
     Indication: Non-Hodgkin^s lymphoma
     Dosage: 30 MG, START DATE OF MOST RECENT DOSE OF STUDY DRUGPRIOR TO AE: 20/NOV/2023 DOSE LAST STUDY DRUG ADM
     Route: 037
     Dates: start: 20231113
  2. METHOTREXATE [Suspect]
     Active Substance: METHOTREXATE
     Indication: Non-Hodgkin^s lymphoma
     Dosage: 15 MG START DATE OF MOST RECENT DOSE OF STUDY DRUGPRIOR TO AE AND SAE: 20/NOV/2023
     Route: 037
     Dates: start: 20231113
  3. GLOFITAMAB [Suspect]
     Active Substance: GLOFITAMAB
     Indication: Non-Hodgkin^s lymphoma
     Dosage: 0.6 MG
     Route: 042
     Dates: start: 20231123
  4. GLOFITAMAB [Suspect]
     Active Substance: GLOFITAMAB
     Dosage: DOSE LAST STUDY DRUG ADMIN PRIOR AE
     Route: 042
  5. GRANULOCYTE COLONY-STIMULATING FACTOR NOS [Suspect]
     Active Substance: GRANULOCYTE COLONY-STIMULATING FACTOR NOS
     Indication: Non-Hodgkin^s lymphoma
     Dosage: 97.5 UG
     Dates: start: 20231129
  6. OBINUTUZUMAB [Suspect]
     Active Substance: OBINUTUZUMAB
     Indication: Non-Hodgkin^s lymphoma
     Dosage: 55 MG
     Route: 042
     Dates: start: 20231116
  7. OBINUTUZUMAB [Suspect]
     Active Substance: OBINUTUZUMAB
     Dosage: 500 MG, DOSE LAST STUDY DRUG ADMIN PRIOR AE 500 MGSTART DATE OF MOST RECENT DOSE OF STUDY DRUG PRIOR
     Route: 042
     Dates: start: 20231117
  8. HYDROCORTISONE [Suspect]
     Active Substance: HYDROCORTISONE
     Indication: Non-Hodgkin^s lymphoma
     Dosage: 15 MG, START DATE OF MOST RECENT DOSE OF STUDY DRUGPRIOR TO SAE: 20/NOV/2023 DOSE LAST STUDY DRUG AD
     Route: 037
     Dates: start: 20231113
  9. POLYETHYLENE GLYCOL 4000 [Concomitant]
     Active Substance: POLYETHYLENE GLYCOL 4000
     Dosage: 8 G, 1X/DAY
     Dates: start: 20231113
  10. BACTRIM [Concomitant]
     Active Substance: SULFAMETHOXAZOLE\TRIMETHOPRIM
     Dosage: 600 MG
     Route: 048
  11. GABAPENTIN [Concomitant]
     Active Substance: GABAPENTIN
     Dosage: 100 MG
     Dates: start: 20231109
  12. AMITRIPTYLINE HYDROCHLORIDE [Concomitant]
     Active Substance: AMITRIPTYLINE HYDROCHLORIDE
     Dosage: 10 MG
     Route: 042
     Dates: start: 20231114
  13. MORPHINE [Concomitant]
     Active Substance: MORPHINE
     Dosage: UNK
     Route: 048
     Dates: start: 20231108, end: 20231206
  14. PREDNISONE [Concomitant]
     Active Substance: PREDNISONE
     Dosage: 25 MG, 2X/DAY
     Route: 048
     Dates: start: 20231109

REACTIONS (2)
  - Death [Fatal]
  - Aspartate aminotransferase increased [Not Recovered/Not Resolved]

NARRATIVE: CASE EVENT DATE: 20231203
